FAERS Safety Report 25373774 (Version 1)
Quarter: 2025Q2

REPORT INFORMATION
  Report Type: Spontaneous
  Country: US (occurrence: None)
  Receive Date: 20250528
  Receipt Date: 20250528
  Transmission Date: 20250716
  Serious: Yes (Life-Threatening, Hospitalization, Other)
  Sender: FDA-CTU
  Company Number: None

PATIENT
  Age: 79 Year
  Sex: Male
  Weight: 81 kg

DRUGS (9)
  1. BLINATUMOMAB [Suspect]
     Active Substance: BLINATUMOMAB
     Indication: Acute lymphocytic leukaemia
     Dates: start: 20250408, end: 20250409
  2. METOPROLOL [Concomitant]
     Active Substance: METOPROLOL
  3. HYTRIN [Concomitant]
     Active Substance: TERAZOSIN HYDROCHLORIDE
  4. FLOMAX [Concomitant]
     Active Substance: TAMSULOSIN HYDROCHLORIDE
  5. LYRICA [Concomitant]
     Active Substance: PREGABALIN
  6. VITAMIN D [Concomitant]
     Active Substance: VITAMIN D NOS
  7. MAGNESIUM [Concomitant]
     Active Substance: MAGNESIUM
  8. chrmotherapy drugs for All and Multiple Myeloma [Concomitant]
  9. Walker [Concomitant]

REACTIONS (14)
  - Neurotoxicity [None]
  - Aphasia [None]
  - Mobility decreased [None]
  - Screaming [None]
  - Overdose [None]
  - Hallucination [None]
  - Agitation [None]
  - Motor dysfunction [None]
  - Visual acuity reduced [None]
  - Memory impairment [None]
  - Impulse-control disorder [None]
  - Emotional disorder [None]
  - Asthenia [None]
  - Urinary retention [None]

NARRATIVE: CASE EVENT DATE: 20250409
